FAERS Safety Report 5006166-7 (Version None)
Quarter: 2006Q1

REPORT INFORMATION
  Report Type: 
  Country: None (occurrence: None)
  Receive Date: 20060328
  Receipt Date: 20050421
  Transmission Date: 20060701
  Serious: Yes (Other)
  Sender: FDA-Public Use
  Company Number: K200500530

PATIENT
  Age: 43 Year
  Sex: Male
  Weight: 93.4 kg

DRUGS (3)
  1. ALTACE [Suspect]
     Indication: HYPERTENSION
     Dosage: 2.5MG, QD, ORAL
     Route: 048
     Dates: start: 20050408, end: 20050412
  2. ALLEGRA [Concomitant]
  3. LORAZEPAM [Concomitant]

REACTIONS (2)
  - DEAFNESS [None]
  - TINNITUS [None]
